FAERS Safety Report 4538551-1 (Version None)
Quarter: 2004Q4

REPORT INFORMATION
  Report Type: 
  Country: None (occurrence: None)
  Receive Date: 20041222
  Receipt Date: 20041208
  Transmission Date: 20050328
  Serious: Yes (Other)
  Sender: FDA-Public Use
  Company Number: BRO-008111

PATIENT
  Sex: Female

DRUGS (1)
  1. PROHANCE [Suspect]
     Indication: NUCLEAR MAGNETIC RESONANCE IMAGING
     Dosage: IV
     Route: 042

REACTIONS (2)
  - ANGIONEUROTIC OEDEMA [None]
  - CONTRAST MEDIA REACTION [None]
